FAERS Safety Report 6282800-9 (Version None)
Quarter: 2009Q3

REPORT INFORMATION
  Report Type: 
  Country: None (occurrence: None)
  Receive Date: 20090722
  Receipt Date: 20090722
  Transmission Date: 20100115
  Serious: Yes (Death, Other)
  Sender: FDA-Public Use
  Company Number: None

PATIENT
  Sex: Female

DRUGS (1)
  1. HEPARIN [Suspect]
     Indication: THROMBOSIS PROPHYLAXIS
     Dosage: 12U/KG/HR WITH 60U/KG BOLUS 12U/KG/HR INTRAVENOUS DRIP
     Route: 041
     Dates: start: 20090415

REACTIONS (4)
  - ANKLE FRACTURE [None]
  - FALL [None]
  - TRAUMATIC BRAIN INJURY [None]
  - UNRESPONSIVE TO STIMULI [None]
